FAERS Safety Report 19724176 (Version 2)
Quarter: 2021Q3

REPORT INFORMATION
  Report Type: Report from Study
  Country: US (occurrence: US)
  Receive Date: 20210819
  Receipt Date: 20210825
  Transmission Date: 20211014
  Serious: No
  Sender: FDA-Public Use
  Company Number: US-IPSEN BIOPHARMACEUTICALS, INC.-2021-19960

PATIENT
  Age: 46 Year
  Sex: Male
  Weight: 94.8 kg

DRUGS (2)
  1. SOMATULINE DEPOT [Suspect]
     Active Substance: LANREOTIDE ACETATE
     Indication: ACROMEGALY
     Dosage: 120 MG EVERY 4 WEEKS
     Route: 058
     Dates: start: 20210709, end: 20210709
  2. SOMATULINE DEPOT [Suspect]
     Active Substance: LANREOTIDE ACETATE
     Indication: GIGANTISM
     Dosage: 90 MG EVERY 4 WEEKS
     Route: 030
     Dates: start: 202108

REACTIONS (3)
  - Irritable bowel syndrome [Recovered/Resolved]
  - Incorrect route of product administration [Unknown]
  - Flatulence [Recovered/Resolved]

NARRATIVE: CASE EVENT DATE: 2021
